FAERS Safety Report 23771405 (Version 1)
Quarter: 2024Q2

REPORT INFORMATION
  Report Type: Spontaneous
  Country: NL (occurrence: NL)
  Receive Date: 20240423
  Receipt Date: 20240423
  Transmission Date: 20240716
  Serious: Yes (Other)
  Sender: FDA-Public Use
  Company Number: NL-LRB-00944524

PATIENT
  Age: 14 Year
  Sex: Male
  Weight: 60 kg

DRUGS (1)
  1. ISOTRETINOIN [Suspect]
     Active Substance: ISOTRETINOIN
     Indication: Acne
     Dosage: 1 PIECES PER DAY
     Route: 065
     Dates: start: 20201201, end: 20210201

REACTIONS (5)
  - Suicide attempt [Recovering/Resolving]
  - Suicidal ideation [Recovering/Resolving]
  - Depression [Recovering/Resolving]
  - Somnambulism [Recovered/Resolved]
  - Nightmare [Recovered/Resolved]
